FAERS Safety Report 10230739 (Version 1)
Quarter: 2014Q2

REPORT INFORMATION
  Report Type: Spontaneous
  Country: IT (occurrence: IT)
  Receive Date: 20140611
  Receipt Date: 20140611
  Transmission Date: 20141212
  Serious: Yes (Hospitalization)
  Sender: FDA-Public Use
  Company Number: IT-WATSON-2014-12096

PATIENT
  Age: 45 Year
  Sex: Female

DRUGS (3)
  1. LORMETAZEPAM [Suspect]
     Indication: INSOMNIA
     Dosage: 100 MG, DAILY
     Route: 048
     Dates: start: 20101111, end: 20120511
  2. TRIAZOLAM [Suspect]
     Indication: INSOMNIA
     Dosage: 15 MG, DAILY
     Route: 048
     Dates: start: 20101111, end: 20120511
  3. CLONAZEPAM (UNKNOWN) [Suspect]
     Indication: INSOMNIA
     Dosage: 8 MG, DAILY
     Route: 048
     Dates: start: 20101111, end: 20120511

REACTIONS (1)
  - Drug dependence [Recovering/Resolving]
